FAERS Safety Report 16230796 (Version 1)
Quarter: 2019Q2

REPORT INFORMATION
  Report Type: Spontaneous
  Country: None (occurrence: US)
  Receive Date: 20190423
  Receipt Date: 20190423
  Transmission Date: 20190711
  Serious: No
  Sender: FDA-Public Use
  Company Number: US-MEDAC PHARMA, INC.-2066148

PATIENT
  Age: 49 Year
  Sex: Female
  Weight: 77.27 kg

DRUGS (17)
  1. LAMICTAL [Concomitant]
     Active Substance: LAMOTRIGINE
  2. FOLIC ACID. [Concomitant]
     Active Substance: FOLIC ACID
  3. SYNTHROID [Concomitant]
     Active Substance: LEVOTHYROXINE SODIUM
  4. LIOTHYRONINE SODIUM. [Concomitant]
     Active Substance: LIOTHYRONINE SODIUM
  5. REMERON [Concomitant]
     Active Substance: MIRTAZAPINE
  6. RASUVO [Suspect]
     Active Substance: METHOTREXATE SODIUM
     Indication: RHEUMATOID ARTHRITIS
     Route: 051
     Dates: start: 2017
  7. NEXIUM [Concomitant]
     Active Substance: ESOMEPRAZOLE MAGNESIUM
  8. DEPLIN [Concomitant]
     Active Substance: LEVOMEFOLATE CALCIUM
  9. LITHIUM. [Concomitant]
     Active Substance: LITHIUM
  10. AMITIZA [Concomitant]
     Active Substance: LUBIPROSTONE
  11. LEXAPRO [Concomitant]
     Active Substance: ESCITALOPRAM OXALATE
  12. RITUXAN [Concomitant]
     Active Substance: RITUXIMAB
  13. LYRICA [Concomitant]
     Active Substance: PREGABALIN
  14. VITAMIN D3 [Concomitant]
     Active Substance: CHOLECALCIFEROL
  15. CELEBREX [Concomitant]
     Active Substance: CELECOXIB
  16. FENOFIBRATE. [Concomitant]
     Active Substance: FENOFIBRATE
  17. SEROQUEL [Concomitant]
     Active Substance: QUETIAPINE FUMARATE

REACTIONS (3)
  - Drug ineffective [Unknown]
  - Product storage error [Unknown]
  - Injection site pain [Unknown]
